FAERS Safety Report 23285847 (Version 2)
Quarter: 2023Q4

REPORT INFORMATION
  Report Type: Report from Study
  Country: US (occurrence: US)
  Receive Date: 20231212
  Receipt Date: 20231222
  Transmission Date: 20240110
  Serious: Yes (Other)
  Sender: FDA-Public Use
  Company Number: US-ABBVIE-5531595

PATIENT
  Sex: Female

DRUGS (1)
  1. SKYRIZI [Suspect]
     Active Substance: RISANKIZUMAB-RZAA
     Indication: Psoriasis
     Route: 058
     Dates: start: 20231107

REACTIONS (9)
  - Knee arthroplasty [Not Recovered/Not Resolved]
  - Muscle strain [Not Recovered/Not Resolved]
  - Adverse drug reaction [Recovered/Resolved]
  - Skin disorder [Recovered/Resolved]
  - Nausea [Unknown]
  - Headache [Recovered/Resolved]
  - Influenza like illness [Recovered/Resolved]
  - Pain [Recovered/Resolved]
  - Dehydration [Unknown]

NARRATIVE: CASE EVENT DATE: 20230101
